FAERS Safety Report 21203381 (Version 2)
Quarter: 2022Q3

REPORT INFORMATION
  Report Type: Spontaneous
  Country: BR (occurrence: BR)
  Receive Date: 20220811
  Receipt Date: 20220826
  Transmission Date: 20221026
  Serious: Yes (Life-Threatening, Hospitalization, Other)
  Sender: FDA-Public Use
  Company Number: BR-TEVA BRAZIL-2022-BR-2062458

PATIENT
  Age: 27 Year
  Sex: Female

DRUGS (3)
  1. METHOTREXATE [Suspect]
     Active Substance: METHOTREXATE
     Indication: Dermatitis psoriasiform
     Route: 058
  2. GEMCITABINE [Suspect]
     Active Substance: GEMCITABINE
     Indication: Malignant lymphoid neoplasm
     Route: 065
  3. CHLORAMBUCIL [Concomitant]
     Active Substance: CHLORAMBUCIL
     Indication: Malignant lymphoid neoplasm
     Route: 065

REACTIONS (4)
  - Non-cardiogenic pulmonary oedema [Recovering/Resolving]
  - Acute respiratory failure [Recovering/Resolving]
  - Hypoxia [Recovering/Resolving]
  - Drug ineffective [Unknown]
